FAERS Safety Report 23127341 (Version 1)
Quarter: 2023Q4

REPORT INFORMATION
  Report Type: Report from Study
  Country: JP (occurrence: JP)
  Receive Date: 20231031
  Receipt Date: 20231031
  Transmission Date: 20240110
  Serious: Yes (Other)
  Sender: FDA-Public Use
  Company Number: JP-TAKEDA-2023TJP013707

PATIENT
  Age: 64 Year
  Sex: Female
  Weight: 58 kg

DRUGS (3)
  1. PANITUMUMAB [Suspect]
     Active Substance: PANITUMUMAB
     Indication: Adenocarcinoma of colon
     Dosage: 340 MILLIGRAM, Q2WK
     Route: 065
     Dates: start: 20210204, end: 20210323
  2. IRINOTECAN [Suspect]
     Active Substance: IRINOTECAN
     Indication: Adenocarcinoma of colon
     Dosage: 180 MILLIGRAM
     Route: 065
     Dates: start: 20210204, end: 20210204
  3. IRINOTECAN [Suspect]
     Active Substance: IRINOTECAN
     Dosage: 150 MILLIGRAM
     Route: 065
     Dates: start: 20210302, end: 20210302

REACTIONS (7)
  - Neutrophil count decreased [Unknown]
  - Fatigue [Unknown]
  - Nausea [Unknown]
  - Diarrhoea [Unknown]
  - Dry skin [Unknown]
  - Blood magnesium decreased [Not Recovered/Not Resolved]
  - Alopecia [Recovered/Resolved]
